FAERS Safety Report 16321201 (Version 1)
Quarter: 2019Q2

REPORT INFORMATION
  Report Type: Spontaneous
  Country: DE (occurrence: DE)
  Receive Date: 20190516
  Receipt Date: 20190516
  Transmission Date: 20190711
  Serious: Yes (Other)
  Sender: FDA-Public Use
  Company Number: DE-PFIZER INC-2019201356

PATIENT
  Age: 89 Year
  Sex: Female

DRUGS (3)
  1. DIOVAN [Suspect]
     Active Substance: VALSARTAN
     Dosage: UNK
     Route: 065
  2. VALSARTAN. [Suspect]
     Active Substance: VALSARTAN
     Dosage: UNK
     Route: 065
  3. DILTIAZEM HCL [Suspect]
     Active Substance: DILTIAZEM HYDROCHLORIDE
     Dosage: UNK
     Route: 065

REACTIONS (3)
  - Pneumonia [Unknown]
  - Dizziness [Not Recovered/Not Resolved]
  - Lip disorder [Not Recovered/Not Resolved]

NARRATIVE: CASE EVENT DATE: 201812
